FAERS Safety Report 5779611-7 (Version None)
Quarter: 2008Q2

REPORT INFORMATION
  Report Type: 
  Country: None (occurrence: None)
  Receive Date: 20080619
  Receipt Date: 20070802
  Transmission Date: 20081010
  Serious: No
  Sender: FDA-Public Use
  Company Number: US-ASTRAZENECA-2007UW18668

PATIENT
  Age: 75 Year
  Sex: Female
  Weight: 63.5 kg

DRUGS (2)
  1. ATACAND HCT [Suspect]
     Indication: HYPERTENSION
     Dosage: 32/12.5 MG
     Route: 048
     Dates: start: 20070701
  2. CLONIDINE [Concomitant]

REACTIONS (4)
  - DEHYDRATION [None]
  - FEELING JITTERY [None]
  - ILL-DEFINED DISORDER [None]
  - MUSCLE SPASMS [None]
